FAERS Safety Report 14732415 (Version 1)
Quarter: 2018Q2

REPORT INFORMATION
  Report Type: Report from Study
  Country: None (occurrence: CA)
  Receive Date: 20180409
  Receipt Date: 20180409
  Transmission Date: 20180711
  Serious: Yes (Hospitalization)
  Sender: FDA-Public Use
  Company Number: CA-ABBVIE-18K-028-2313895-00

PATIENT
  Age: 90 Year
  Sex: Female

DRUGS (1)
  1. HUMIRA [Suspect]
     Active Substance: ADALIMUMAB
     Indication: RHEUMATOID ARTHRITIS
     Route: 058
     Dates: start: 20061019, end: 20180321

REACTIONS (4)
  - Head injury [Unknown]
  - Fall [Recovered/Resolved]
  - Facial bones fracture [Unknown]
  - Nasal injury [Unknown]

NARRATIVE: CASE EVENT DATE: 20180403
